FAERS Safety Report 10103412 (Version 2)
Quarter: 2014Q2

REPORT INFORMATION
  Report Type: Other
  Country: US (occurrence: US)
  Receive Date: 20140424
  Receipt Date: 20140613
  Transmission Date: 20141212
  Serious: Yes (Hospitalization, Other)
  Sender: FDA-Public Use
  Company Number: US-GSKPPD-2014GSK000093

PATIENT
  Age: 59 Year
  Sex: Female
  Weight: 179.33 kg

DRUGS (1)
  1. AVANDIA [Suspect]
     Indication: DIABETES MELLITUS
     Route: 048
     Dates: start: 20020628, end: 20070815

REACTIONS (2)
  - Myocardial infarction [None]
  - Aortic stenosis [Recovered/Resolved]
